FAERS Safety Report 16781157 (Version 1)
Quarter: 2019Q3

REPORT INFORMATION
  Report Type: Spontaneous
  Country: US (occurrence: US)
  Receive Date: 20190906
  Receipt Date: 20190906
  Transmission Date: 20191005
  Serious: No
  Sender: FDA-Public Use
  Company Number: US-SA-2019SA245815

PATIENT
  Sex: Male

DRUGS (12)
  1. VITAMIN A + D [ERGOCALCIFEROL;RETINOL] [Concomitant]
  2. DUPIXENT [Suspect]
     Active Substance: DUPILUMAB
     Indication: DERMATITIS ATOPIC
     Dosage: 300 MG, QOW
     Route: 058
     Dates: start: 20190820
  3. OFLOXACIN. [Concomitant]
     Active Substance: OFLOXACIN
  4. MUPIROCIN. [Concomitant]
     Active Substance: MUPIROCIN
  5. PREDNISONE. [Concomitant]
     Active Substance: PREDNISONE
  6. LOTEPREDNOL ETABONATE [Concomitant]
     Active Substance: LOTEPREDNOL ETABONATE
  7. TOBRAMYCIN AND DEXAMETHASONE [Concomitant]
     Active Substance: DEXAMETHASONE\TOBRAMYCIN
  8. ZIRGAN [Concomitant]
     Active Substance: GANCICLOVIR
  9. VALACYCLOVIR [Concomitant]
     Active Substance: VALACYCLOVIR HYDROCHLORIDE
  10. FENOFIBRIC ACID. [Concomitant]
     Active Substance: FENOFIBRIC ACID
  11. ATENOLOL. [Concomitant]
     Active Substance: ATENOLOL
  12. DESOXIMETASONE. [Concomitant]
     Active Substance: DESOXIMETASONE

REACTIONS (3)
  - Pruritus [Unknown]
  - Dry skin [Unknown]
  - Inflammation [Recovering/Resolving]

NARRATIVE: CASE EVENT DATE: 201908
